FAERS Safety Report 12201209 (Version 1)
Quarter: 2016Q1

REPORT INFORMATION
  Report Type: Spontaneous
  Country: US (occurrence: US)
  Receive Date: 20160322
  Receipt Date: 20160322
  Transmission Date: 20160526
  Serious: No
  Sender: FDA-Public Use
  Company Number: US-SA-2015SA062177

PATIENT
  Age: 86 Year
  Sex: Female

DRUGS (2)
  1. NASACORT ALLERGY 24HR [Suspect]
     Active Substance: TRIAMCINOLONE ACETONIDE
     Indication: MULTIPLE ALLERGIES
     Dosage: TAKEN FROM: ABOUT 2 MONTH AGO?DAILY DOSE: 1 SPRAYS IN EACH
     Route: 045
  2. NASACORT ALLERGY 24HR [Suspect]
     Active Substance: TRIAMCINOLONE ACETONIDE
     Indication: MULTIPLE ALLERGIES
     Dosage: TAKEN FROM: ABOUT 2 MONTH AGO?DAILY DOSE: 2 SPRAYS IN EACH
     Route: 045

REACTIONS (3)
  - Drug effect decreased [Unknown]
  - Insomnia [Unknown]
  - Dyspnoea [Unknown]
